FAERS Safety Report 6522209-3 (Version None)
Quarter: 2009Q4

REPORT INFORMATION
  Report Type: 
  Country: None (occurrence: None)
  Receive Date: 20091229
  Receipt Date: 20091229
  Transmission Date: 20100525
  Serious: Yes (Life-Threatening, Hospitalization)
  Sender: FDA-Public Use
  Company Number: None

PATIENT
  Age: 50 Year
  Sex: Female
  Weight: 65 kg

DRUGS (11)
  1. VORICONAZOLE [Suspect]
     Indication: SINUSITIS FUNGAL
     Dosage: 200MG PO BID
     Route: 048
     Dates: start: 20091013, end: 20091015
  2. VORICONAZOLE [Suspect]
     Indication: SINUSITIS FUNGAL
     Dosage: 200MG PO BID
     Route: 048
     Dates: start: 20091030, end: 20091114
  3. CEFEPIME [Concomitant]
  4. DAPTOMYCIN [Concomitant]
  5. FENTANYL-100 [Concomitant]
  6. LORAZEPAM [Concomitant]
  7. MAGNESIUM [Concomitant]
  8. MEDROXYPROGESTERONE [Concomitant]
  9. METRONIDAZOLE [Concomitant]
  10. PRAVASTATIN [Concomitant]
  11. RANITIDINE [Concomitant]

REACTIONS (7)
  - HYPOTENSION [None]
  - PYREXIA [None]
  - RASH [None]
  - RASH MACULO-PAPULAR [None]
  - RENAL FAILURE ACUTE [None]
  - TACHYCARDIA [None]
  - TACHYPNOEA [None]
